FAERS Safety Report 5055968-X (Version None)
Quarter: 2006Q3

REPORT INFORMATION
  Report Type: 
  Country: None (occurrence: None)
  Receive Date: 20060720
  Receipt Date: 20060710
  Transmission Date: 20061208
  Serious: Yes (Death)
  Sender: FDA-Public Use
  Company Number: JP-BRISTOL-MYERS SQUIBB COMPANY-13444856

PATIENT
  Age: 53 Year
  Sex: Male
  Weight: 101 kg

DRUGS (11)
  1. ABILIFY [Suspect]
     Route: 048
     Dates: start: 20060621, end: 20060709
  2. OLANZAPINE [Concomitant]
     Route: 048
     Dates: start: 20060621, end: 20060709
  3. PAROXETINE HCL [Concomitant]
     Route: 048
     Dates: end: 20060621
  4. PEROSPIRONE [Concomitant]
     Route: 048
     Dates: end: 20060709
  5. PROTOPORPHYRIN DISODIUM [Concomitant]
     Route: 048
     Dates: end: 20060709
  6. FLUVASTATIN SODIUM [Concomitant]
     Route: 048
     Dates: end: 20060709
  7. ZOLPIDEM TARTRATE [Concomitant]
     Route: 048
     Dates: end: 20060709
  8. BIPERIDEN HYDROCHLORIDE TAB [Concomitant]
     Route: 048
  9. ZOTEPINE [Concomitant]
     Route: 048
     Dates: start: 20060627, end: 20060709
  10. CARBAMAZEPINE [Concomitant]
     Route: 048
     Dates: start: 20060627, end: 20060709
  11. QUETIAPINE FUMARATE [Concomitant]
     Route: 048
     Dates: end: 20060709

REACTIONS (1)
  - HEAT STROKE [None]
